FAERS Safety Report 5276501-3 (Version None)
Quarter: 2007Q1

REPORT INFORMATION
  Report Type: 
  Country: None (occurrence: None)
  Receive Date: 20061214
  Receipt Date: 20061027
  Transmission Date: 20070707
  Serious: Yes (Other)
  Sender: FDA-Public Use
  Company Number: 2006133637

PATIENT
  Age: 72 Year
  Sex: Male

DRUGS (3)
  1. ERAXIS [Suspect]
     Indication: FUNGAL INFECTION
  2. VORICONAZOLE (VORICONAZOLE) [Concomitant]
  3. FLAGYL [Concomitant]

REACTIONS (3)
  - BLOOD POTASSIUM INCREASED [None]
  - BLOOD SODIUM DECREASED [None]
  - LEUKOPENIA [None]
